FAERS Safety Report 6042825-5 (Version None)
Quarter: 2009Q1

REPORT INFORMATION
  Report Type: 
  Country: None (occurrence: None)
  Receive Date: 20090119
  Receipt Date: 20090107
  Transmission Date: 20090719
  Serious: Yes (Hospitalization, Disabling)
  Sender: FDA-Public Use
  Company Number: FR-JNJFOC-20090101308

PATIENT
  Age: 55 Year
  Sex: Male

DRUGS (6)
  1. REMICADE [Suspect]
     Route: 042
  2. REMICADE [Suspect]
     Route: 042
  3. REMICADE [Suspect]
     Route: 042
  4. REMICADE [Suspect]
     Route: 042
  5. REMICADE [Suspect]
     Indication: PSORIASIS
     Route: 042
  6. METHOTREXATE [Concomitant]
     Indication: PSORIASIS

REACTIONS (20)
  - ANAPHYLACTIC SHOCK [None]
  - ARTHRITIS [None]
  - BALANCE DISORDER [None]
  - CHILLS [None]
  - DEMYELINATION [None]
  - ERYTHEMA [None]
  - FATIGUE [None]
  - GAIT DISTURBANCE [None]
  - HYPERHIDROSIS [None]
  - HYPERSENSITIVITY [None]
  - IMMUNE SYSTEM DISORDER [None]
  - IMPAIRED WORK ABILITY [None]
  - INFUSION RELATED REACTION [None]
  - JOINT EFFUSION [None]
  - MALAISE [None]
  - PAIN [None]
  - POLYNEUROPATHY [None]
  - PRURITUS [None]
  - PYREXIA [None]
  - SOFT TISSUE DISORDER [None]
